FAERS Safety Report 9914108 (Version 1)
Quarter: 2014Q1

REPORT INFORMATION
  Report Type: Spontaneous
  Country: US (occurrence: None)
  Receive Date: 20140219
  Receipt Date: 20140219
  Transmission Date: 20141002
  Serious: Yes (Other)
  Sender: FDA-Public Use
  Company Number: None

PATIENT
  Age: 43 Year
  Sex: Female
  Weight: 63.5 kg

DRUGS (1)
  1. LEVAQUIN [Suspect]
     Indication: SINUSITIS
     Dosage: 1 PILL  ONCE DAILY  TAKEN BY MOUTH
     Route: 048
     Dates: start: 20120414, end: 20120414

REACTIONS (13)
  - Dizziness [None]
  - Photophobia [None]
  - Headache [None]
  - Myalgia [None]
  - Anxiety [None]
  - Irritability [None]
  - Psychomotor hyperactivity [None]
  - Heart rate increased [None]
  - Pain [None]
  - Hypoaesthesia [None]
  - Paraesthesia [None]
  - Musculoskeletal stiffness [None]
  - Photosensitivity reaction [None]
